FAERS Safety Report 6256297-9 (Version None)
Quarter: 2009Q3

REPORT INFORMATION
  Report Type: 
  Country: None (occurrence: None)
  Receive Date: 20090706
  Receipt Date: 20090622
  Transmission Date: 20100115
  Serious: Yes (Hospitalization)
  Sender: FDA-Public Use
  Company Number: US-BAYER-200815636NA

PATIENT
  Age: 42 Year
  Sex: Female

DRUGS (26)
  1. CAMPATH [Suspect]
     Indication: MULTIPLE SCLEROSIS
     Dosage: TOTAL DAILY DOSE: 24 MG
     Route: 042
     Dates: start: 20030714, end: 20030718
  2. PREDNISONE [Concomitant]
     Dates: start: 20070116, end: 20070118
  3. COPAXONE [Concomitant]
     Dosage: TOTAL DAILY DOSE: 20 MG
     Route: 058
  4. MAXALT [Concomitant]
  5. NITROGLYCERIN [Concomitant]
     Dosage: 2 MG/HR
     Route: 062
  6. RESTORIL [Concomitant]
     Dosage: TOTAL DAILY DOSE: 15 MG
     Route: 048
  7. PROTONIX [Concomitant]
     Dosage: TOTAL DAILY DOSE: 40 MG
     Route: 048
  8. NEURONTIN [Concomitant]
     Dosage: TOTAL DAILY DOSE: 900 MG
     Route: 048
  9. TYLENOL W/ CODEINE NO. 3 [Concomitant]
     Dosage: Q6H PRN
  10. CLONAZEPAM [Concomitant]
     Dosage: TOTAL DAILY DOSE: 1 MG
     Route: 048
  11. ZOLOFT [Concomitant]
     Dosage: TOTAL DAILY DOSE: 100 MG
     Route: 048
  12. MORPHINE SULFATE [Concomitant]
     Dosage: 1-2 Q4H
  13. SINGULAIR [Concomitant]
     Dosage: TOTAL DAILY DOSE: 10 MG
     Route: 048
  14. ASPIRIN [Concomitant]
     Dosage: TOTAL DAILY DOSE: 81 MG
     Route: 048
  15. FLOVENT [Concomitant]
     Dosage: TOTAL DAILY DOSE: 4 PUFF
     Route: 055
  16. VERAPAMIL [Concomitant]
  17. PRAVASTATIN [Concomitant]
  18. AVELOX [Concomitant]
  19. HYDROCODONE BITARTRATE [Concomitant]
  20. HYDROMORPHONE [Concomitant]
  21. TIZANIDINE [Concomitant]
  22. CLARINEX [Concomitant]
  23. REQUIP [Concomitant]
  24. CYMBALTA [Concomitant]
  25. VICODIN [Concomitant]
  26. XANAX [Concomitant]

REACTIONS (4)
  - ASTHMA [None]
  - HYPOAESTHESIA [None]
  - MUSCULAR WEAKNESS [None]
  - PAIN IN EXTREMITY [None]
